FAERS Safety Report 12309967 (Version 1)
Quarter: 2016Q2

REPORT INFORMATION
  Report Type: Spontaneous
  Country: US (occurrence: None)
  Receive Date: 20160426
  Receipt Date: 20160426
  Transmission Date: 20160815
  Serious: Yes (Disabling)
  Sender: FDA-Public Use
  Company Number: None

PATIENT
  Age: 9 Year
  Sex: Female
  Weight: 36.29 kg

DRUGS (2)
  1. GUMMY VITAMINS [Concomitant]
  2. STRATTERA [Suspect]
     Active Substance: ATOMOXETINE HYDROCHLORIDE
     Indication: ATTENTION DEFICIT/HYPERACTIVITY DISORDER
     Route: 048

REACTIONS (4)
  - Abdominal pain upper [None]
  - Discomfort [None]
  - Moaning [None]
  - Crying [None]

NARRATIVE: CASE EVENT DATE: 20160310
